FAERS Safety Report 10868802 (Version 1)
Quarter: 2015Q1

REPORT INFORMATION
  Report Type: Spontaneous
  Country: US (occurrence: US)
  Receive Date: 20150225
  Receipt Date: 20150225
  Transmission Date: 20150721
  Serious: Yes (Hospitalization)
  Sender: FDA-Public Use
  Company Number: US-MYLANLABS-2014SP002303

PATIENT
  Age: 13 Year
  Sex: Female

DRUGS (8)
  1. SALBUTAMOL [Concomitant]
     Active Substance: ALBUTEROL
  2. AMOXICILLIN TRIHYDRATE [Concomitant]
     Active Substance: AMOXICILLIN
  3. FLOLAN [Suspect]
     Active Substance: EPOPROSTENOL SODIUM
     Indication: COR PULMONALE CHRONIC
     Dates: start: 20131107
  4. VANCOMYCIN HYDROCHLORIDE. [Suspect]
     Active Substance: VANCOMYCIN HYDROCHLORIDE
     Indication: PRODUCT USED FOR UNKNOWN INDICATION
     Route: 042
  5. DIGOXIN. [Concomitant]
     Active Substance: DIGOXIN
  6. WARFARIN SODIUM. [Concomitant]
     Active Substance: WARFARIN SODIUM
  7. FLOVENT [Concomitant]
     Active Substance: FLUTICASONE PROPIONATE
  8. FUROSEMIDE. [Concomitant]
     Active Substance: FUROSEMIDE

REACTIONS (19)
  - Nausea [Unknown]
  - Abdominal pain [Unknown]
  - Drug hypersensitivity [Not Recovered/Not Resolved]
  - Red man syndrome [Unknown]
  - Nasopharyngitis [Unknown]
  - Drug eruption [Not Recovered/Not Resolved]
  - Haematemesis [Recovered/Resolved]
  - Gastrooesophageal reflux disease [Unknown]
  - Dysgeusia [Unknown]
  - Dyspnoea [Recovering/Resolving]
  - Hypersomnia [Unknown]
  - Rhinitis allergic [Unknown]
  - Haemoptysis [Recovered/Resolved]
  - Sepsis [Unknown]
  - Asthma [Not Recovered/Not Resolved]
  - Dizziness [Recovering/Resolving]
  - Pulmonary haemorrhage [Recovered/Resolved]
  - Respiratory tract infection [Unknown]
  - Influenza [Unknown]

NARRATIVE: CASE EVENT DATE: 20140301
